FAERS Safety Report 9144078 (Version 1)
Quarter: 2013Q1

REPORT INFORMATION
  Report Type: Report from Study
  Country: LV (occurrence: LV)
  Receive Date: 20130306
  Receipt Date: 20130306
  Transmission Date: 20140127
  Serious: Yes (Other)
  Sender: FDA-Public Use
  Company Number: LV-ROCHE-1196145

PATIENT
  Age: 59 Year
  Sex: Female
  Weight: 70 kg

DRUGS (2)
  1. XELODA [Suspect]
     Indication: COLON CANCER
     Route: 048
     Dates: start: 20121228, end: 20130226
  2. XELODA [Suspect]
     Route: 048

REACTIONS (2)
  - Alanine aminotransferase increased [Not Recovered/Not Resolved]
  - Aspartate aminotransferase increased [Not Recovered/Not Resolved]
